FAERS Safety Report 5264978-9 (Version None)
Quarter: 2007Q1

REPORT INFORMATION
  Report Type: 
  Country: None (occurrence: None)
  Receive Date: 20061122
  Receipt Date: 20060811
  Transmission Date: 20070707
  Serious: Yes (Hospitalization)
  Sender: FDA-Public Use
  Company Number: US-JNJFOC-20060803254

PATIENT
  Age: 52 Year
  Sex: Male

DRUGS (2)
  1. RISPERDAL CONSTA [Suspect]
     Indication: SCHIZOAFFECTIVE DISORDER
     Dosage: 37.5 MG, 1 IN 2 WEEK, INTRAMUSCULAR
     Route: 030
  2. SEROQUEL [Concomitant]

REACTIONS (1)
  - PSYCHOTIC DISORDER [None]
